FAERS Safety Report 7455222-2 (Version None)
Quarter: 2011Q2

REPORT INFORMATION
  Report Type: 
  Country: None (occurrence: None)
  Receive Date: 20110503
  Receipt Date: 20110427
  Transmission Date: 20111010
  Serious: Yes (Hospitalization)
  Sender: FDA-Public Use
  Company Number: PHHY2011US08443

PATIENT
  Age: 2 Year
  Sex: Male
  Weight: 13.787 kg

DRUGS (1)
  1. TOBI [Suspect]
     Indication: CYSTIC FIBROSIS
     Dosage: 300 MG, BID
     Dates: start: 20100211

REACTIONS (1)
  - UPPER RESPIRATORY TRACT INFECTION [None]
